FAERS Safety Report 7237408-5 (Version None)
Quarter: 2011Q1

REPORT INFORMATION
  Report Type: 
  Country: None (occurrence: None)
  Receive Date: 20110111
  Receipt Date: 20110103
  Transmission Date: 20110831
  Serious: Yes (Life-Threatening, Hospitalization)
  Sender: FDA-Public Use
  Company Number: DSA_42260_2009

PATIENT
  Age: 53 Year
  Sex: Female

DRUGS (5)
  1. MEPHENOXALONE AND PARACETAMOL [Suspect]
     Indication: PRODUCT USED FOR UNKNOWN INDICATION
     Dosage: (MEPHENOXALONE 200 MG + PARACETAMOL 450 MG)
  2. AMITRIPTYLINE HCL [Concomitant]
  3. DICLOFENAC [Concomitant]
  4. DILTIAZEM HCL [Suspect]
     Indication: PRODUCT USED FOR UNKNOWN INDICATION
     Dosage: (30 MG, FREQUENCY UNKNOWN)
  5. MEPHENOXALONE [Concomitant]

REACTIONS (1)
  - ACUTE GENERALISED EXANTHEMATOUS PUSTULOSIS [None]
